FAERS Safety Report 8033375-5 (Version None)
Quarter: 2012Q1

REPORT INFORMATION
  Report Type: 
  Country: None (occurrence: None)
  Receive Date: 20120110
  Receipt Date: 20120105
  Transmission Date: 20120608
  Serious: Yes (Death)
  Sender: FDA-Public Use
  Company Number: PHEH2012US000688

PATIENT
  Sex: Male

DRUGS (7)
  1. ALLOPURINOL [Concomitant]
     Dosage: 100 MG, UNK
  2. PROCRIT [Concomitant]
  3. EXJADE [Suspect]
     Dosage: 500 MG, TID
     Route: 048
  4. NEUPOGEN [Concomitant]
  5. TIMOPTIC [Concomitant]
  6. XALATAN [Concomitant]
  7. NEXIUM [Concomitant]
     Dosage: 20 MG, UNK

REACTIONS (1)
  - DEATH [None]
